FAERS Safety Report 4987208-1 (Version None)
Quarter: 2006Q2

REPORT INFORMATION
  Report Type: 
  Country: None (occurrence: None)
  Receive Date: 20060501
  Receipt Date: 20050706
  Transmission Date: 20061013
  Serious: Yes (Hospitalization)
  Sender: FDA-Public Use
  Company Number: US-MERCK-0507USA00952

PATIENT
  Age: 59 Year
  Sex: Female
  Weight: 68 kg

DRUGS (15)
  1. VIOXX [Suspect]
     Indication: ARTHRITIS
     Route: 048
     Dates: start: 20010101, end: 20040801
  2. ASPIRIN [Concomitant]
     Route: 065
  3. CALCIUM (UNSPECIFIED) [Concomitant]
     Route: 065
  4. FAMOTIDINE [Concomitant]
     Route: 065
  5. NEURONTIN [Concomitant]
     Route: 065
  6. VITAMINS (UNSPECIFIED) [Concomitant]
     Route: 065
  7. ULTRAM [Concomitant]
     Route: 065
  8. ACTOS [Concomitant]
     Route: 065
  9. AMARYL [Concomitant]
     Route: 065
  10. MYSOLINE [Concomitant]
     Route: 065
  11. SIMETHICONE [Concomitant]
     Route: 065
  12. FOSAMAX [Concomitant]
     Route: 065
  13. MIACALCIN [Concomitant]
     Route: 065
  14. HYDROXYZINE PAMOATE [Concomitant]
     Route: 065
  15. ALPRAZOLAM [Concomitant]
     Route: 065

REACTIONS (6)
  - ABDOMINAL PAIN [None]
  - CEREBROVASCULAR ACCIDENT [None]
  - GENERALISED ANXIETY DISORDER [None]
  - HYPERTENSION [None]
  - NEUROPATHY PERIPHERAL [None]
  - PRESENILE DEMENTIA [None]
